FAERS Safety Report 20407066 (Version 2)
Quarter: 2022Q1

REPORT INFORMATION
  Report Type: Spontaneous
  Country: US (occurrence: US)
  Receive Date: 20220131
  Receipt Date: 20220315
  Transmission Date: 20220423
  Serious: No
  Sender: FDA-Public Use
  Company Number: US-PFIZER INC-202200010636

PATIENT
  Age: 10 Month
  Sex: Male

DRUGS (1)
  1. SOMATROPIN [Suspect]
     Active Substance: SOMATROPIN
     Dosage: 0.2 MG
     Dates: start: 202112

REACTIONS (4)
  - Crying [Unknown]
  - Product preparation error [Unknown]
  - Device leakage [Unknown]
  - Drug dose omission by device [Unknown]
